FAERS Safety Report 21409668 (Version 1)
Quarter: 2022Q4

REPORT INFORMATION
  Report Type: Report from Study
  Country: TW (occurrence: None)
  Receive Date: 20221004
  Receipt Date: 20221004
  Transmission Date: 20230112
  Serious: Yes (Other)
  Sender: FDA-Public Use
  Company Number: 2022A332706

PATIENT
  Age: 68 Year
  Sex: Male

DRUGS (2)
  1. GEFITINIB [Suspect]
     Active Substance: GEFITINIB
     Indication: Lung adenocarcinoma
     Route: 048
  2. OSIMERTINIB [Suspect]
     Active Substance: OSIMERTINIB
     Indication: Lung adenocarcinoma
     Route: 048

REACTIONS (3)
  - Xerosis [Recovering/Resolving]
  - Mucosal inflammation [Recovering/Resolving]
  - Drug eruption [Recovering/Resolving]
